FAERS Safety Report 15294457 (Version 1)
Quarter: 2018Q3

REPORT INFORMATION
  Report Type: Spontaneous
  Country: IT (occurrence: IT)
  Receive Date: 20180820
  Receipt Date: 20180820
  Transmission Date: 20181010
  Serious: Yes (Hospitalization)
  Sender: FDA-Public Use
  Company Number: IT-BAYER-200211081GDS

PATIENT
  Age: 40 Year
  Sex: Female

DRUGS (3)
  1. AVALOX [Suspect]
     Active Substance: MOXIFLOXACIN HYDROCHLORIDE
     Indication: UNEVALUABLE EVENT
     Dosage: 400 MG (DAILY DOSE), QD, ORAL
     Route: 048
  2. LOCABIOTAL [Suspect]
     Active Substance: FUSAFUNGINE
     Indication: UNEVALUABLE EVENT
     Route: 055
  3. AVALOX [Suspect]
     Active Substance: MOXIFLOXACIN HYDROCHLORIDE
     Indication: UNEVALUABLE EVENT

REACTIONS (2)
  - Laryngeal stenosis [Unknown]
  - Laryngospasm [Unknown]

NARRATIVE: CASE EVENT DATE: 20011021
